FAERS Safety Report 8476434-5 (Version None)
Quarter: 2012Q2

REPORT INFORMATION
  Report Type: 
  Country: None (occurrence: None)
  Receive Date: 20120622
  Receipt Date: 20120614
  Transmission Date: 20120825
  Serious: Yes (Hospitalization, Other)
  Sender: FDA-Public Use
  Company Number: 2012SP002055

PATIENT
  Age: 60 Year
  Sex: Female
  Weight: 50 kg

DRUGS (11)
  1. LOCHOLEST [Concomitant]
  2. VOLTAREN [Concomitant]
  3. INTERFERON [Suspect]
     Indication: HEPATITIS C
     Dosage: 6;3 MIU, QD, INDRP
     Dates: start: 20110210, end: 20110222
  4. INTERFERON [Suspect]
     Indication: HEPATITIS C
     Dosage: 6;3 MIU, QD, INDRP
     Dates: start: 20110126, end: 20110205
  5. INTERFERON [Suspect]
     Indication: HEPATITIS C
     Dosage: 6;3 MIU, QD, INDRP
     Dates: start: 20110206, end: 20110209
  6. INTERFERON [Suspect]
     Indication: HEPATITIS C
     Dosage: 6;3 MIU, QD, INDRP
     Dates: start: 20110225, end: 20110301
  7. INTERFERON [Suspect]
     Indication: HEPATITIS C
     Dosage: 6;3 MIU, QD, INDRP
     Dates: start: 20110309, end: 20110614
  8. ZOLPIDEM [Concomitant]
  9. RESTAMIN [Concomitant]
  10. REBETOL [Suspect]
     Indication: HEPATITIS C
     Dosage: 300 MG, QD, PO
     Route: 048
     Dates: start: 20110126, end: 20110614
  11. ALFAROL [Concomitant]

REACTIONS (5)
  - INSOMNIA [None]
  - DIARRHOEA HAEMORRHAGIC [None]
  - COLITIS ISCHAEMIC [None]
  - DEPRESSION [None]
  - PRURITUS GENERALISED [None]
